FAERS Safety Report 8139583 (Version 5)
Quarter: 2014Q2

REPORT INFORMATION
  Report Type: Report from Study
  Country: US (occurrence: US)
  Receive Date: 20110916
  Receipt Date: 20140629
  Transmission Date: 20141212
  Serious: Yes (Hospitalization, Other)
  Sender: FDA-Public Use
  Company Number: PHEH2011US03455

PATIENT
  Sex: Male
  Weight: 113.38 kg

DRUGS (14)
  1. TASIGNA [Suspect]
     Indication: CHRONIC MYELOID LEUKAEMIA
     Dosage: 300 MG, BID
     Dates: start: 201106
  2. ENAPRIL [Concomitant]
     Dosage: 20 MG, UNK
  3. PLAVIX [Concomitant]
     Dosage: 75 MG, UNK
  4. ISOSORB [Concomitant]
     Dosage: 20 MG, UNK
  5. RANEXA [Concomitant]
     Dosage: 500 MG, UNK
  6. CARVEDILOL [Concomitant]
     Dosage: 6.25 MG, UNK
  7. ASPIRIN [Concomitant]
     Dosage: 81 MG, UNK
  8. TRAZODONE [Concomitant]
     Dosage: 150 MG, UNK
  9. LIPITOR [Concomitant]
  10. DIAZEPAM [Concomitant]
     Dosage: 5 MG, UNK
  11. SPIRIVA [Concomitant]
  12. FLONASE [Concomitant]
     Dosage: 0.05 %, UNK
  13. IMDUR [Concomitant]
     Dosage: 120 MG
  14. VASOTEC [Concomitant]
     Dosage: 20 MG, UNK

REACTIONS (12)
  - Alopecia [Unknown]
  - Photosensitivity reaction [Unknown]
  - Rash [Unknown]
  - Constipation [Unknown]
  - Angina pectoris [Unknown]
  - Device malfunction [Unknown]
  - Testicular pain [Unknown]
  - Sunburn [Unknown]
  - Bone pain [Recovering/Resolving]
  - Myalgia [Recovering/Resolving]
  - Red blood cell count decreased [Unknown]
  - Blood pressure decreased [Unknown]
